FAERS Safety Report 21867713 (Version 1)
Quarter: 2023Q1

REPORT INFORMATION
  Report Type: Report from Study
  Country: DE (occurrence: DE)
  Receive Date: 20230116
  Receipt Date: 20230116
  Transmission Date: 20230417
  Serious: Yes (Death)
  Sender: FDA-Public Use
  Company Number: DE-PFIZER INC-PV202300007215

PATIENT
  Age: 85 Year
  Sex: Male
  Weight: 69 kg

DRUGS (10)
  1. VYNDAQEL [Suspect]
     Active Substance: TAFAMIDIS MEGLUMINE
     Indication: Amyloidosis
     Dosage: 61 MG, 1X/DAY
     Route: 048
     Dates: start: 20200804
  2. ESOMEPRAZOLE [Concomitant]
     Active Substance: ESOMEPRAZOLE
     Indication: Gastritis prophylaxis
     Dosage: UNK
     Route: 048
     Dates: start: 202101
  3. EDOXABAN TOSYLATE [Concomitant]
     Active Substance: EDOXABAN TOSYLATE
     Indication: Cerebrovascular accident prophylaxis
     Dosage: UNK
     Route: 048
     Dates: start: 202108
  4. EPLERENONE [Concomitant]
     Active Substance: EPLERENONE
     Indication: Prophylaxis
     Dosage: UNK
     Route: 048
     Dates: start: 202205
  5. TORSEMIDE [Concomitant]
     Active Substance: TORSEMIDE
     Indication: Prophylaxis
     Dosage: UNK
     Route: 048
     Dates: start: 2017
  6. ENTRESTO [Concomitant]
     Active Substance: SACUBITRIL\VALSARTAN
     Indication: Arrhythmia
     Dosage: UNK
     Route: 048
     Dates: start: 202205
  7. CARVEDILOL [Concomitant]
     Active Substance: CARVEDILOL
     Indication: Cardiac failure
     Dosage: UNK
     Route: 048
     Dates: start: 202108
  8. INSULIN NOS [Concomitant]
     Active Substance: INSULIN NOS
     Indication: Diabetes mellitus
     Dosage: UNK
     Route: 058
     Dates: start: 2019
  9. INSULIN NOS [Concomitant]
     Active Substance: INSULIN NOS
     Indication: Diabetes mellitus
     Dosage: UNK
     Route: 058
     Dates: start: 2019
  10. JARDIANCE [Concomitant]
     Active Substance: EMPAGLIFLOZIN
     Indication: Diabetes mellitus
     Dosage: UNK
     Route: 048
     Dates: start: 202108

REACTIONS (1)
  - Death [Fatal]

NARRATIVE: CASE EVENT DATE: 20230111
